FAERS Safety Report 18411800 (Version 6)
Quarter: 2021Q3

REPORT INFORMATION
  Report Type: Spontaneous
  Country: PT (occurrence: PT)
  Receive Date: 20201021
  Receipt Date: 20210820
  Transmission Date: 20211014
  Serious: Yes (Hospitalization, Other)
  Sender: FDA-Public Use
  Company Number: PT-MYLANLABS-2020M1088337

PATIENT
  Age: 70 Year
  Sex: Female

DRUGS (4)
  1. AMIODARONE [Suspect]
     Active Substance: AMIODARONE
     Indication: ATRIAL FIBRILLATION
     Dosage: 300 MG, QD
  2. THIAMAZOLE [Concomitant]
     Active Substance: METHIMAZOLE
     Indication: ATRIAL FIBRILLATION
     Dosage: 30 MG, QD
  3. AMIODARONE [Suspect]
     Active Substance: AMIODARONE
     Dosage: 300 MILLIGRAM
  4. PREDNISOLONE. [Concomitant]
     Active Substance: PREDNISOLONE
     Indication: ATRIAL FIBRILLATION
     Dosage: 40 MG, QD

REACTIONS (10)
  - Tachycardia [Recovered/Resolved]
  - Atrial fibrillation [Unknown]
  - Cardiomegaly [Unknown]
  - Palpitations [Recovered/Resolved]
  - Hyperthyroidism [Recovered/Resolved]
  - Thyrotoxic crisis [Recovered/Resolved]
  - Dizziness [Recovered/Resolved]
  - Fatigue [Recovered/Resolved]
  - Thyroiditis [Recovered/Resolved]
  - Hyperhidrosis [Recovered/Resolved]
